FAERS Safety Report 19413849 (Version 2)
Quarter: 2021Q3

REPORT INFORMATION
  Report Type: Report from Study
  Country: US (occurrence: US)
  Receive Date: 20210614
  Receipt Date: 20210714
  Transmission Date: 20211014
  Serious: Yes (Other)
  Sender: FDA-Public Use
  Company Number: US-JAZZ-2021-US-010442

PATIENT
  Age: 56 Year
  Sex: Female

DRUGS (5)
  1. XYREM [Suspect]
     Active Substance: SODIUM OXYBATE
     Dosage: 4 GRAM
     Route: 048
     Dates: start: 201801
  2. XYREM [Suspect]
     Active Substance: SODIUM OXYBATE
     Indication: NARCOLEPSY
     Dosage: 4.5 GRAM, BID
     Route: 048
     Dates: start: 201703, end: 201707
  3. XYREM [Suspect]
     Active Substance: SODIUM OXYBATE
     Dosage: 3 GRAM
     Route: 048
     Dates: start: 201801
  4. XYREM [Suspect]
     Active Substance: SODIUM OXYBATE
     Indication: CATAPLEXY
     Dosage: 4 GRAM
     Route: 048
     Dates: start: 201707, end: 201801
  5. XYREM [Suspect]
     Active Substance: SODIUM OXYBATE
     Dosage: 2.5 GRAM
     Route: 048
     Dates: start: 201707, end: 201801

REACTIONS (3)
  - Pruritus [Unknown]
  - Undifferentiated connective tissue disease [Unknown]
  - Orthopaedic procedure [Unknown]

NARRATIVE: CASE EVENT DATE: 20200103
